FAERS Safety Report 6520947-X (Version None)
Quarter: 2009Q4

REPORT INFORMATION
  Report Type: 
  Country: None (occurrence: None)
  Receive Date: 20091229
  Receipt Date: 20091218
  Transmission Date: 20100525
  Serious: Yes (Other)
  Sender: FDA-Public Use
  Company Number: US-AMGEN-QUU373832

PATIENT
  Sex: Female
  Weight: 108 kg

DRUGS (14)
  1. ENBREL [Suspect]
     Indication: RHEUMATOID ARTHRITIS
     Route: 058
     Dates: start: 20021202
  2. ASPIRIN [Concomitant]
  3. CITRACAL [Concomitant]
  4. MULTIVITAMIN [Concomitant]
  5. SLOW-FE [Concomitant]
  6. NEXIUM [Concomitant]
  7. FOLIC ACID [Concomitant]
  8. VITAMIN D [Concomitant]
  9. FISH OIL [Concomitant]
  10. FUROSEMIDE [Concomitant]
  11. UNSPECIFIED MEDICATION [Concomitant]
  12. LISINOPRIL [Concomitant]
  13. UNSPECIFIED TOPICAL PRODUCT [Concomitant]
  14. ATENOLOL [Concomitant]

REACTIONS (7)
  - FLUID OVERLOAD [None]
  - HEART RATE DECREASED [None]
  - LARGE GRANULAR LYMPHOCYTOSIS [None]
  - OEDEMA PERIPHERAL [None]
  - PALPITATIONS [None]
  - PANCYTOPENIA [None]
  - UPPER RESPIRATORY TRACT INFECTION [None]
